FAERS Safety Report 9333517 (Version 1)
Quarter: 2013Q2

REPORT INFORMATION
  Report Type: Spontaneous
  Country: US (occurrence: US)
  Receive Date: 20130606
  Receipt Date: 20130606
  Transmission Date: 20140414
  Serious: No
  Sender: FDA-Public Use
  Company Number: US-AMGEN-USASP2012077302

PATIENT
  Sex: Male

DRUGS (3)
  1. XGEVA [Suspect]
     Indication: PROSTATE CANCER METASTATIC
     Dosage: 120 MG, Q4WK
     Dates: start: 20120926
  2. LUPRON [Concomitant]
     Dosage: UNK
  3. CASODEX [Concomitant]
     Dosage: UNK

REACTIONS (1)
  - Blood calcium decreased [Not Recovered/Not Resolved]
